FAERS Safety Report 18544612 (Version 10)
Quarter: 2021Q1

REPORT INFORMATION
  Report Type: Spontaneous
  Country: PL (occurrence: PL)
  Receive Date: 20201125
  Receipt Date: 20210219
  Transmission Date: 20210419
  Serious: Yes (Life-Threatening, Hospitalization, Other)
  Sender: FDA-Public Use
  Company Number: NVSC2020PL305626

PATIENT
  Age: 43 Year
  Sex: Male

DRUGS (12)
  1. DASATINIB. [Suspect]
     Active Substance: DASATINIB
     Dosage: ALTERNATING BETWEEN DOSES OF 50 MG/DAY AND 100 MG/DAY.
     Route: 048
     Dates: start: 201409, end: 2014
  2. IMATINIB. [Suspect]
     Active Substance: IMATINIB MESYLATE
     Indication: CHRONIC MYELOID LEUKAEMIA
     Dosage: 400 MG, PER DAY
     Route: 065
     Dates: start: 201210, end: 201307
  3. HYDROXYUREA. [Suspect]
     Active Substance: HYDROXYUREA
     Indication: CHRONIC MYELOID LEUKAEMIA
     Dosage: UNK
     Route: 065
  4. PONATINIB [Concomitant]
     Active Substance: PONATINIB
     Indication: CHRONIC MYELOID LEUKAEMIA
     Dosage: 15 MG, QD
     Route: 065
  5. DASATINIB. [Suspect]
     Active Substance: DASATINIB
     Indication: CHRONIC MYELOID LEUKAEMIA
     Dosage: 100 MG, QD
     Route: 048
     Dates: start: 201307, end: 201408
  6. DASATINIB. [Suspect]
     Active Substance: DASATINIB
     Dosage: 50 MG, PER DAY; 100 MG ALTERNATELY
     Route: 048
     Dates: start: 2014, end: 201605
  7. PREDNISONE. [Concomitant]
     Active Substance: PREDNISONE
     Indication: CHRONIC MYELOID LEUKAEMIA
     Dosage: 20 MG, QD
     Route: 065
  8. CYTARABINE. [Suspect]
     Active Substance: CYTARABINE
     Indication: CHRONIC MYELOID LEUKAEMIA
     Dosage: UNK
     Route: 058
  9. DASATINIB. [Suspect]
     Active Substance: DASATINIB
     Dosage: 50 MG, QD
     Route: 048
     Dates: start: 201611, end: 201705
  10. PONATINIB [Concomitant]
     Active Substance: PONATINIB
     Dosage: 45 MG, QD
     Route: 065
     Dates: start: 201705
  11. DASATINIB. [Suspect]
     Active Substance: DASATINIB
     Dosage: UNK
     Route: 048
     Dates: start: 2014, end: 201605
  12. DASATINIB. [Suspect]
     Active Substance: DASATINIB
     Dosage: UNK
     Route: 048
     Dates: start: 2016, end: 2016

REACTIONS (16)
  - Pleural effusion [Recovering/Resolving]
  - Loss of therapeutic response [Recovered/Resolved]
  - Thrombocytopenia [Unknown]
  - Lung opacity [Unknown]
  - Acquired gene mutation [Unknown]
  - Sepsis [Recovered/Resolved]
  - Treatment failure [Recovered/Resolved]
  - Pneumonia [Recovered/Resolved]
  - Bacterial sepsis [Recovering/Resolving]
  - Pleural effusion [Unknown]
  - Pulmonary tuberculosis [Recovered/Resolved]
  - Thrombocytopenia [Recovered/Resolved]
  - Drug resistance [Unknown]
  - Therapeutic product effect incomplete [Unknown]
  - Therapeutic response decreased [Unknown]
  - Drug ineffective [Unknown]

NARRATIVE: CASE EVENT DATE: 201305
